FAERS Safety Report 9618143 (Version 2)
Quarter: 2013Q4

REPORT INFORMATION
  Report Type: Spontaneous
  Country: US (occurrence: US)
  Receive Date: 20131014
  Receipt Date: 20131014
  Transmission Date: 20140711
  Serious: Yes (Hospitalization, Other)
  Sender: FDA-Public Use
  Company Number: US-ROCHE-1177068

PATIENT
  Age: 20 Year
  Sex: Female

DRUGS (11)
  1. ZELBORAF [Suspect]
     Indication: METASTATIC MALIGNANT MELANOMA
     Route: 048
     Dates: start: 20120118, end: 20130103
  2. ZELBORAF [Suspect]
     Route: 048
     Dates: start: 20120801
  3. CELEXA [Concomitant]
     Route: 048
  4. CLONAZEPAM [Concomitant]
     Route: 048
  5. EMLA CREAM [Concomitant]
     Route: 061
  6. LORTAB [Concomitant]
     Dosage: 10-500 MG
     Route: 048
  7. RESTORIL [Concomitant]
     Route: 048
  8. RITALIN [Concomitant]
     Route: 048
  9. FERROUSUL (UNK INGREDIENTS) [Concomitant]
     Route: 048
  10. METHYLPHENIDATE [Concomitant]
  11. PITOCIN [Concomitant]

REACTIONS (5)
  - Exposure during pregnancy [Unknown]
  - Nausea [Unknown]
  - Pre-eclampsia [Not Recovered/Not Resolved]
  - Anaemia of pregnancy [Not Recovered/Not Resolved]
  - Bacterial vaginosis [Not Recovered/Not Resolved]
